FAERS Safety Report 6144433-4 (Version None)
Quarter: 2009Q2

REPORT INFORMATION
  Report Type: 
  Country: None (occurrence: None)
  Receive Date: 20090406
  Receipt Date: 20090330
  Transmission Date: 20091009
  Serious: Yes (Other)
  Sender: FDA-Public Use
  Company Number: FR-ABBOTT-09P-056-0565503-00

PATIENT
  Age: 7 Year
  Sex: Male

DRUGS (2)
  1. ZECLAR TABLETS [Suspect]
     Indication: DRUG USE FOR UNKNOWN INDICATION
     Dates: start: 20080101, end: 20080101
  2. CLARAMID [Suspect]
     Indication: TONSILLITIS
     Dates: start: 20090101, end: 20090101

REACTIONS (2)
  - MYOSITIS [None]
  - RHABDOMYOLYSIS [None]
